FAERS Safety Report 16197446 (Version 2)
Quarter: 2019Q2

REPORT INFORMATION
  Report Type: Spontaneous
  Country: US (occurrence: US)
  Receive Date: 20190415
  Receipt Date: 20190529
  Transmission Date: 20190711
  Serious: No
  Sender: FDA-Public Use
  Company Number: US-MYLANLABS-2019M1030646

PATIENT
  Sex: Female
  Weight: 82 kg

DRUGS (1)
  1. WIXELA INHUB [Suspect]
     Active Substance: FLUTICASONE PROPIONATE\SALMETEROL XINAFOATE
     Indication: ASTHMA
     Dosage: 100/50 MICROGRAM , BID
     Route: 049
     Dates: start: 20190313

REACTIONS (2)
  - Cough [Not Recovered/Not Resolved]
  - Device use issue [Not Recovered/Not Resolved]
